FAERS Safety Report 5310830-X (Version None)
Quarter: 2007Q2

REPORT INFORMATION
  Report Type: 
  Country: None (occurrence: None)
  Receive Date: 20070428
  Receipt Date: 20070418
  Transmission Date: 20071010
  Serious: Yes (Hospitalization, Other)
  Sender: FDA-Public Use
  Company Number: US-PFIZER INC-2006107806

PATIENT
  Sex: Female

DRUGS (1)
  1. LYRICA [Suspect]

REACTIONS (4)
  - BLOOD PRESSURE INCREASED [None]
  - PAPILLOEDEMA [None]
  - PARAESTHESIA [None]
  - VISUAL FIELD DEFECT [None]
